FAERS Safety Report 5750131-9 (Version None)
Quarter: 2008Q2

REPORT INFORMATION
  Report Type: 
  Country: None (occurrence: None)
  Receive Date: 20080527
  Receipt Date: 20080515
  Transmission Date: 20081010
  Serious: Yes (Other)
  Sender: FDA-Public Use
  Company Number: GB-PFIZER INC-2008026265

PATIENT
  Age: 42 Year
  Sex: Female
  Weight: 85.3 kg

DRUGS (2)
  1. CHANTIX [Suspect]
     Indication: SMOKING CESSATION THERAPY
     Route: 048
     Dates: start: 20080215, end: 20080226
  2. DICLOFENAC [Concomitant]
     Indication: PAIN
     Route: 048

REACTIONS (6)
  - ARTHRALGIA [None]
  - DYSPNOEA [None]
  - FEELING HOT [None]
  - HEADACHE [None]
  - INSOMNIA [None]
  - NIGHTMARE [None]
